FAERS Safety Report 7723448-6 (Version None)
Quarter: 2011Q3

REPORT INFORMATION
  Report Type: 
  Country: None (occurrence: None)
  Receive Date: 20110901
  Receipt Date: 20110825
  Transmission Date: 20111222
  Serious: Yes (Other)
  Sender: FDA-Public Use
  Company Number: US-PFIZER INC-US-WYE-H02975908

PATIENT
  Sex: Female
  Weight: 56.2 kg

DRUGS (2)
  1. PREMARIN [Suspect]
     Indication: HORMONE REPLACEMENT THERAPY
     Dosage: 0.625 UNKNOWN UNITS
     Route: 048
     Dates: start: 19930701, end: 20031201
  2. PROPRANOLOL [Concomitant]
     Indication: MIGRAINE
     Dosage: UNK
     Dates: start: 19600101

REACTIONS (1)
  - OVARIAN CANCER METASTATIC [None]
